FAERS Safety Report 6213975-5 (Version None)
Quarter: 2009Q2

REPORT INFORMATION
  Report Type: 
  Country: None (occurrence: None)
  Receive Date: 20090604
  Receipt Date: 20090529
  Transmission Date: 20091009
  Serious: Yes (Life-Threatening, Hospitalization)
  Sender: FDA-Public Use
  Company Number: CH-JNJFOC-20090506921

PATIENT
  Age: 56 Year
  Sex: Male

DRUGS (12)
  1. HALDOL [Suspect]
     Indication: DRUG USE FOR UNKNOWN INDICATION
     Route: 048
  2. ANXIOLIT [Suspect]
     Indication: DRUG USE FOR UNKNOWN INDICATION
     Route: 048
  3. ZYPREXA [Suspect]
     Indication: DRUG USE FOR UNKNOWN INDICATION
     Route: 048
  4. LIQUEMINE [Concomitant]
     Route: 042
  5. TIENAM [Concomitant]
     Route: 042
  6. CLARITHROMYCIN [Concomitant]
     Route: 048
  7. NORVASC [Concomitant]
     Route: 048
  8. TRANDATE [Concomitant]
     Indication: HYPERTENSION
     Route: 048
  9. BECOSYM [Concomitant]
     Route: 048
  10. BENERVA [Concomitant]
     Route: 048
  11. NEXIUM [Concomitant]
     Route: 048
  12. DOSPIR [Concomitant]
     Route: 055

REACTIONS (2)
  - HYPERCAPNIA [None]
  - RESPIRATORY FAILURE [None]
